FAERS Safety Report 8318633-9 (Version None)
Quarter: 2012Q2

REPORT INFORMATION
  Report Type: 
  Country: None (occurrence: None)
  Receive Date: 20120427
  Receipt Date: 20090811
  Transmission Date: 20120825
  Serious: No
  Sender: FDA-Public Use
  Company Number: US-TEVA-2009009552

PATIENT
  Sex: Male

DRUGS (3)
  1. SYMBYAX [Concomitant]
     Indication: AFFECTIVE DISORDER
     Route: 048
  2. NUVIGIL [Suspect]
     Indication: FATIGUE
     Route: 048
     Dates: start: 20090727
  3. SYMBYAX [Concomitant]
     Route: 048
     Dates: start: 20090804

REACTIONS (2)
  - SUICIDAL IDEATION [None]
  - NEGLECT OF PERSONAL APPEARANCE [None]
